FAERS Safety Report 10075942 (Version 1)
Quarter: 2014Q2

REPORT INFORMATION
  Report Type: Spontaneous
  Country: US (occurrence: None)
  Receive Date: 20140411
  Receipt Date: 20140411
  Transmission Date: 20141212
  Serious: Yes (Life-Threatening)
  Sender: FDA-Public Use
  Company Number: None

PATIENT
  Age: 60 Year
  Sex: Female
  Weight: 110.68 kg

DRUGS (1)
  1. PROLASTIN C [Suspect]
     Indication: ALPHA-1 ANTI-TRYPSIN DEFICIENCY
     Dosage: 60MG/KG (+/-10%) WEEKLY INTRAVENOUS
     Route: 042
     Dates: start: 20140205, end: 20140410

REACTIONS (6)
  - Erythema [None]
  - Erythema [None]
  - Dyspnoea [None]
  - Lip swelling [None]
  - Tongue disorder [None]
  - Pharyngeal disorder [None]
